FAERS Safety Report 19903365 (Version 2)
Quarter: 2021Q4

REPORT INFORMATION
  Report Type: Report from Study
  Country: None (occurrence: US)
  Receive Date: 20211001
  Receipt Date: 20211005
  Transmission Date: 20220303
  Serious: Yes (Hospitalization)
  Sender: FDA-Public Use
  Company Number: US-ABBVIE-21K-163-4020098-00

PATIENT
  Sex: Male

DRUGS (2)
  1. IMBRUVICA [Suspect]
     Active Substance: IBRUTINIB
     Indication: Chronic lymphocytic leukaemia
     Route: 048
  2. IMBRUVICA [Suspect]
     Active Substance: IBRUTINIB
     Route: 048
     Dates: start: 202002

REACTIONS (8)
  - Apnoea [Unknown]
  - Exposure to chemical pollution [Unknown]
  - Hypotension [Unknown]
  - Hospitalisation [Unknown]
  - Asthenia [Unknown]
  - Musculoskeletal disorder [Unknown]
  - Blood lactate dehydrogenase increased [Unknown]
  - Blood uric acid increased [Unknown]
